FAERS Safety Report 5344492-2 (Version None)
Quarter: 2007Q2

REPORT INFORMATION
  Report Type: 
  Country: None (occurrence: None)
  Receive Date: 20070604
  Receipt Date: 20070524
  Transmission Date: 20071010
  Serious: Yes (Hospitalization, Other)
  Sender: FDA-Public Use
  Company Number: GB-PFIZER INC-2007034534

PATIENT
  Age: 69 Year
  Sex: Male

DRUGS (4)
  1. LYRICA [Suspect]
     Indication: CONVULSION
     Route: 048
  2. LYRICA [Interacting]
     Indication: EPILEPSY
  3. TEGRETOL [Interacting]
  4. PHENOBARBITONE [Interacting]
     Indication: EPILEPSY

REACTIONS (6)
  - BALANCE DISORDER [None]
  - DIPLOPIA [None]
  - DIZZINESS [None]
  - DRUG INTERACTION [None]
  - FALL [None]
  - VISION BLURRED [None]
